FAERS Safety Report 6096984-9 (Version None)
Quarter: 2009Q1

REPORT INFORMATION
  Report Type: 
  Country: None (occurrence: None)
  Receive Date: 20090227
  Receipt Date: 20090217
  Transmission Date: 20090719
  Serious: Yes (Hospitalization)
  Sender: FDA-Public Use
  Company Number: ES-PFIZER INC-2009171294

PATIENT

DRUGS (6)
  1. LYRICA [Suspect]
     Route: 048
     Dates: start: 20080101
  2. IBUPROFEN LYSINATE [Interacting]
     Indication: PAIN
     Dosage: 600 MG, 1X/DAY
     Route: 048
     Dates: start: 20080401
  3. AUGMENTIN '125' [Interacting]
     Indication: DIARRHOEA
     Dosage: FREQUENCY: EVERY DAY;
     Route: 048
     Dates: start: 20080714, end: 20080717
  4. ENALAPRIL MALEATE AND HYDROCHLOROTHIAZIDE [Interacting]
     Indication: HYPERTENSION
     Route: 048
  5. RASAGILINE MESILATE [Concomitant]
     Indication: PARKINSON'S DISEASE
     Route: 048
  6. NORVASC [Concomitant]
     Indication: HYPERTENSION
     Route: 048

REACTIONS (2)
  - DRUG INTERACTION [None]
  - RENAL FAILURE CHRONIC [None]
